FAERS Safety Report 5447894-9 (Version None)
Quarter: 2007Q3

REPORT INFORMATION
  Report Type: 
  Country: None (occurrence: None)
  Receive Date: 20070910
  Receipt Date: 20070829
  Transmission Date: 20080115
  Serious: Yes (Other)
  Sender: FDA-Public Use
  Company Number: US-PFIZER INC-2007073072

PATIENT
  Sex: Female
  Weight: 80.3 kg

DRUGS (42)
  1. LIPITOR [Suspect]
     Indication: BLOOD CHOLESTEROL INCREASED
     Dates: start: 20070101, end: 20070101
  2. LIPITOR [Suspect]
     Indication: HIGH DENSITY LIPOPROTEIN DECREASED
  3. CHANTIX [Suspect]
  4. HYDROCHLOROTHIAZIDE [Suspect]
     Indication: FLUID RETENTION
  5. POTASSIUM CHLORIDE [Suspect]
     Indication: FLUID RETENTION
  6. LASIX [Suspect]
     Indication: FLUID RETENTION
  7. TIZANIDINE HCL [Concomitant]
  8. GLIPIZIDE [Concomitant]
  9. TRAZODONE HCL [Concomitant]
  10. NEXIUM [Concomitant]
  11. LORATADINE [Concomitant]
  12. METOPROLOL SUCCINATE [Concomitant]
  13. XANAX [Concomitant]
  14. XANAX [Concomitant]
  15. CYMBALTA [Concomitant]
  16. CYMBALTA [Concomitant]
  17. MS CONTIN [Concomitant]
  18. MS CONTIN [Concomitant]
  19. ISOSORBIDE MONONITRATE [Concomitant]
  20. ISOSORBIDE MONONITRATE [Concomitant]
  21. LYRICA [Concomitant]
  22. LYRICA [Concomitant]
  23. HYDROCODONE BITARTRATE + ACETAMINOPHEN [Concomitant]
  24. HYDROCODONE BITARTRATE + ACETAMINOPHEN [Concomitant]
  25. GLUCOPHAGE [Concomitant]
  26. GLUCOPHAGE [Concomitant]
  27. ACTOS [Concomitant]
  28. ACTOS [Concomitant]
  29. VITAMIN CAP [Concomitant]
  30. VITAMIN CAP [Concomitant]
  31. CALCIUM [Concomitant]
     Dosage: TEXT:THREE TIMES A DAY
  32. CALCIUM [Concomitant]
  33. VITAMIN A [Concomitant]
  34. VITAMIN A [Concomitant]
  35. VITAMIN E [Concomitant]
  36. VITAMIN E [Concomitant]
  37. IRON [Concomitant]
  38. ASPIRIN [Concomitant]
  39. ALL OTHER THERAPEUTIC PRODUCTS [Concomitant]
  40. PROCATEROL HCL [Concomitant]
  41. OXYGEN [Concomitant]
  42. NITROGLYCERIN [Concomitant]

REACTIONS (4)
  - ENZYME ABNORMALITY [None]
  - FLUID RETENTION [None]
  - HALLUCINATION, VISUAL [None]
  - MUSCLE SPASTICITY [None]
